FAERS Safety Report 8058491-3 (Version None)
Quarter: 2012Q1

REPORT INFORMATION
  Report Type: 
  Country: None (occurrence: None)
  Receive Date: 20120120
  Receipt Date: 20120117
  Transmission Date: 20120608
  Serious: Yes (Hospitalization)
  Sender: FDA-Public Use
  Company Number: NL-PFIZER INC-2012014887

PATIENT
  Age: 30 Year
  Sex: Female

DRUGS (4)
  1. VENLAFAXINE HYDROCHLORIDE [Concomitant]
     Dosage: 150 MG, 1X/DAY
     Dates: start: 20050901
  2. GABAPENTIN [Concomitant]
     Dosage: 900 MG, 3X/DAY
     Dates: start: 20100501
  3. METHYLPREDNISOLONE SODIUM SUCCINATE [Suspect]
     Indication: MULTIPLE SCLEROSIS
     Dosage: 1000 MG, 1X/DAY FOR 3 DAYS
     Dates: start: 20110601
  4. SYMMETREL [Concomitant]
     Dosage: 100 MG, 1X/DAY
     Dates: start: 20100501

REACTIONS (2)
  - DEPRESSED LEVEL OF CONSCIOUSNESS [None]
  - MOTOR DYSFUNCTION [None]
